FAERS Safety Report 6414796-0 (Version None)
Quarter: 2009Q4

REPORT INFORMATION
  Report Type: 
  Country: None (occurrence: None)
  Receive Date: 20091026
  Receipt Date: 20091026
  Transmission Date: 20100525
  Serious: Yes (Other)
  Sender: FDA-Public Use
  Company Number: None

PATIENT
  Age: 11 Year
  Sex: Female
  Weight: 28.123 kg

DRUGS (1)
  1. XYZAL [Suspect]
     Indication: MULTIPLE ALLERGIES
     Dosage: 5 MG PO
     Route: 048
     Dates: start: 20090805, end: 20090812

REACTIONS (2)
  - PSYCHOMOTOR HYPERACTIVITY [None]
  - THIRST [None]
